FAERS Safety Report 10070341 (Version 1)
Quarter: 2014Q2

REPORT INFORMATION
  Report Type: Spontaneous
  Country: AU (occurrence: AU)
  Receive Date: 20140410
  Receipt Date: 20140410
  Transmission Date: 20141212
  Serious: Yes (Death, Other)
  Sender: FDA-Public Use
  Company Number: PHHY2014AU040966

PATIENT
  Age: 24 Year
  Sex: Male

DRUGS (2)
  1. RITALIN [Suspect]
     Indication: ATTENTION DEFICIT/HYPERACTIVITY DISORDER
     Dosage: UNK UKN, UNK
  2. RITALIN [Suspect]
     Dosage: 30 DF (300 MG) IN 24 HRS

REACTIONS (6)
  - Toxicity to various agents [Fatal]
  - Drug abuse [Unknown]
  - Fall [Unknown]
  - Chest pain [Unknown]
  - Abdominal pain [Unknown]
  - Wrong technique in drug usage process [Unknown]
